FAERS Safety Report 6962899-4 (Version None)
Quarter: 2010Q3

REPORT INFORMATION
  Report Type: 
  Country: None (occurrence: None)
  Receive Date: 20100902
  Receipt Date: 20100820
  Transmission Date: 20110219
  Serious: No
  Sender: FDA-Public Use
  Company Number: US-PFIZER INC-2010105377

PATIENT
  Sex: Male
  Weight: 70 kg

DRUGS (12)
  1. PROVERA [Suspect]
     Indication: OFF LABEL USE
     Dosage: 10 MG, 6X/DAILY
     Route: 048
  2. PROVERA [Suspect]
     Indication: LUNG DISORDER
  3. COZAAR [Concomitant]
     Indication: HYPERTENSION
     Dosage: 25 MG, DAILY
     Route: 048
  4. ATENOLOL [Concomitant]
     Indication: HYPERTENSION
     Dosage: 75 MG, DAILY
     Route: 048
  5. LASIX [Concomitant]
     Dosage: UNK
     Route: 048
  6. PROCRIT [Concomitant]
     Indication: RENAL DISORDER
     Dosage: 6000 IU, WEEKLY
  7. FENTANYL [Concomitant]
     Indication: PAIN
     Dosage: 25 UG, UNK
  8. OXYGEN [Concomitant]
     Indication: TOTAL LUNG CAPACITY DECREASED
     Dosage: UNK
  9. VITAMIN D [Concomitant]
     Dosage: UNK
  10. FOLIC ACID [Concomitant]
     Dosage: UNK
  11. VITAMIN B-12 [Concomitant]
     Dosage: UNK
  12. ASCORBIC ACID [Concomitant]
     Dosage: UNK

REACTIONS (1)
  - HYPERHIDROSIS [None]
